FAERS Safety Report 5500959-5 (Version None)
Quarter: 2007Q4

REPORT INFORMATION
  Report Type: 
  Country: None (occurrence: None)
  Receive Date: 20071029
  Receipt Date: 20071019
  Transmission Date: 20080405
  Serious: Yes (Other)
  Sender: FDA-Public Use
  Company Number: PHBS2007CH17469

PATIENT
  Sex: Male

DRUGS (2)
  1. TEGRETOL [Suspect]
     Indication: EPILEPSY
     Dosage: 800 MG/DAY
     Route: 048
  2. DEPAKINE CHRONO [Suspect]
     Indication: EPILEPSY
     Dosage: 2300 MG/DAY
     Route: 048

REACTIONS (1)
  - VISUAL FIELD DEFECT [None]
